FAERS Safety Report 15282660 (Version 1)
Quarter: 2018Q3

REPORT INFORMATION
  Report Type: Spontaneous
  Country: US (occurrence: US)
  Receive Date: 20180816
  Receipt Date: 20180816
  Transmission Date: 20181010
  Serious: Yes (Life-Threatening, Hospitalization, Other)
  Sender: FDA-Public Use
  Company Number: US-IBIGEN-2018.04647

PATIENT
  Age: 57 Year
  Sex: Male

DRUGS (4)
  1. CEFTAROLINE [Suspect]
     Active Substance: CEFTAROLINE
     Indication: SEPSIS
  2. UNK [Suspect]
     Active Substance: UNSPECIFIED INGREDIENT
     Indication: SEPSIS
  3. VANCOMYCIN [Suspect]
     Active Substance: VANCOMYCIN
     Indication: SEPSIS
  4. DAPTOMYCIN. [Suspect]
     Active Substance: DAPTOMYCIN
     Indication: SEPSIS

REACTIONS (2)
  - Drug ineffective [Recovered/Resolved]
  - Acute kidney injury [Recovering/Resolving]
